FAERS Safety Report 9255504 (Version 1)
Quarter: 2013Q2

REPORT INFORMATION
  Report Type: Spontaneous
  Country: CA (occurrence: None)
  Receive Date: 20130418
  Receipt Date: 20130418
  Transmission Date: 20140414
  Serious: Yes (Other)
  Sender: FDA-Public Use
  Company Number: 2013-001096

PATIENT
  Age: 78 Year
  Sex: Female
  Weight: 72.6 kg

DRUGS (6)
  1. ACTONEL (RISEDRONATE SODIUM) TABLET, UNKMG [Suspect]
     Indication: OSTEOPOROSIS
     Dosage: ONCE WEEKLY
     Route: 048
     Dates: start: 1998, end: 201201
  2. ALL OTHER THERAPEUTIC PRODUCTS [Concomitant]
  3. LIPITOR (ATORVASTATIN CALCIUM) [Concomitant]
  4. LIPIDIL EZ (FENOFIBRATE) [Concomitant]
  5. DIOVAN (VALSARTAN) [Concomitant]
  6. PAXIL (PAROXETINE HYDROCHLORIDE) [Concomitant]

REACTIONS (2)
  - Atypical femur fracture [None]
  - Pain in extremity [None]
